FAERS Safety Report 9826300 (Version 1)
Quarter: 2014Q1

REPORT INFORMATION
  Report Type: Spontaneous
  Country: US (occurrence: US)
  Receive Date: 20140117
  Receipt Date: 20140117
  Transmission Date: 20141002
  Serious: No
  Sender: FDA-Public Use
  Company Number: US-BIOGENIDEC-2014BI000985

PATIENT
  Age: 55 Year
  Sex: Female

DRUGS (10)
  1. TECFIDERA [Suspect]
     Indication: MULTIPLE SCLEROSIS
     Route: 048
     Dates: start: 20131120, end: 20131223
  2. SOLU MEDROL [Concomitant]
  3. NEURONTIN [Concomitant]
  4. TRAMADOL [Concomitant]
  5. BACLOFEN [Concomitant]
  6. CALCIUM [Concomitant]
  7. ASPIRIN [Concomitant]
  8. LORTAB [Concomitant]
  9. PROZAC [Concomitant]
  10. VITAMIN C [Concomitant]

REACTIONS (3)
  - Flatulence [Unknown]
  - Gastrointestinal pain [Unknown]
  - Diarrhoea [Unknown]
